FAERS Safety Report 8556924 (Version 6)
Quarter: 2013Q2

REPORT INFORMATION
  Report Type: Spontaneous
  Country: US (occurrence: US)
  Receive Date: 20120511
  Receipt Date: 20130423
  Transmission Date: 20140414
  Serious: No
  Sender: FDA-Public Use
  Company Number: US-BIOGENIDEC-2012BI015937

PATIENT
  Age: 33 Year
  Sex: Female

DRUGS (2)
  1. TYSABRI [Suspect]
     Indication: MULTIPLE SCLEROSIS
     Route: 042
     Dates: start: 20120118, end: 20120411
  2. TYSABRI [Suspect]
     Indication: MULTIPLE SCLEROSIS
     Route: 042

REACTIONS (12)
  - Glossodynia [Recovered/Resolved]
  - Swollen tongue [Recovered/Resolved]
  - Pain in extremity [Not Recovered/Not Resolved]
  - Tongue pruritus [Recovered/Resolved]
  - Nerve injury [Not Recovered/Not Resolved]
  - Burning sensation [Not Recovered/Not Resolved]
  - Hypoaesthesia oral [Recovered/Resolved]
  - Sleep paralysis [Recovered/Resolved]
  - Disturbance in attention [Not Recovered/Not Resolved]
  - Cognitive disorder [Not Recovered/Not Resolved]
  - Hypersensitivity [Recovered/Resolved]
  - Choking [Recovered/Resolved]
